FAERS Safety Report 21866804 (Version 3)
Quarter: 2023Q1

REPORT INFORMATION
  Report Type: Report from Study
  Country: US (occurrence: US)
  Receive Date: 20230116
  Receipt Date: 20230321
  Transmission Date: 20230418
  Serious: Yes (Other)
  Sender: FDA-Public Use
  Company Number: US-ABBVIE-4237551

PATIENT
  Age: 63 Year
  Sex: Male
  Weight: 88 kg

DRUGS (3)
  1. RINVOQ [Suspect]
     Active Substance: UPADACITINIB
     Indication: Rheumatoid arthritis
     Dosage: FORM STRENGTH: 15 MILLIGRAM
     Route: 048
     Dates: start: 20220801
  2. RINVOQ [Suspect]
     Active Substance: UPADACITINIB
     Indication: Rheumatoid arthritis
     Route: 048
  3. RINVOQ [Suspect]
     Active Substance: UPADACITINIB
     Indication: Rheumatoid arthritis
     Dosage: FORM STRENGTH 15 MILLIGRAM
     Route: 048
     Dates: start: 20221013

REACTIONS (11)
  - Pulmonary oedema [Unknown]
  - Feeling abnormal [Unknown]
  - Erythema [Unknown]
  - Weight increased [Unknown]
  - Upper respiratory tract infection [Unknown]
  - Pruritus [Unknown]
  - Skin disorder [Unknown]
  - Skin burning sensation [Recovering/Resolving]
  - Rheumatoid arthritis [Unknown]
  - Skin exfoliation [Recovering/Resolving]
  - Fungal foot infection [Unknown]

NARRATIVE: CASE EVENT DATE: 20221015
